FAERS Safety Report 13471905 (Version 1)
Quarter: 2017Q2

REPORT INFORMATION
  Report Type: Spontaneous
  Country: US (occurrence: US)
  Receive Date: 20170424
  Receipt Date: 20170424
  Transmission Date: 20170830
  Serious: Yes (Other)
  Sender: FDA-Public Use
  Company Number: US-PFIZER INC-2017174564

PATIENT
  Age: 39 Year
  Sex: Male
  Weight: 290 kg

DRUGS (1)
  1. VIAGRA [Suspect]
     Active Substance: SILDENAFIL CITRATE
     Indication: ERECTILE DYSFUNCTION
     Dosage: 1 PILL ONCE A DAY FOR 4 DAYS
     Dates: start: 20170417

REACTIONS (7)
  - Penile pain [Unknown]
  - Pruritus genital [Unknown]
  - Intentional product misuse [Unknown]
  - Erection increased [Unknown]
  - Genital rash [Unknown]
  - Expired product administered [Unknown]
  - Penile discharge [Unknown]

NARRATIVE: CASE EVENT DATE: 201704
